FAERS Safety Report 4276120-1 (Version None)
Quarter: 2004Q1

REPORT INFORMATION
  Report Type: 
  Country: None (occurrence: None)
  Receive Date: 20040121
  Receipt Date: 20031010
  Transmission Date: 20041129
  Serious: No
  Sender: FDA-Public Use
  Company Number: US-GLAXOSMITHKLINE-A0429798A

PATIENT
  Age: 61 Year
  Sex: Female

DRUGS (6)
  1. VALTREX [Suspect]
     Dosage: 500MG PER DAY
     Route: 048
  2. FOSAMAX [Concomitant]
  3. PREMARIN [Concomitant]
  4. BLOOD PRESSURE MEDICATION [Concomitant]
  5. NASONEX [Concomitant]
  6. BENADRYL [Concomitant]

REACTIONS (1)
  - DRUG INEFFECTIVE [None]
